FAERS Safety Report 23833509 (Version 1)
Quarter: 2024Q2

REPORT INFORMATION
  Report Type: Spontaneous
  Country: BE (occurrence: BE)
  Receive Date: 20240508
  Receipt Date: 20240508
  Transmission Date: 20240716
  Serious: Yes (Other)
  Sender: FDA-Public Use
  Company Number: BE-STRIDES ARCOLAB LIMITED-2024SP005418

PATIENT
  Age: 65 Year
  Sex: Female

DRUGS (12)
  1. PREDNISOLONE [Suspect]
     Active Substance: PREDNISOLONE
     Indication: Pyoderma gangrenosum
     Dosage: UNK, QD (MORE THAN 10MG)
     Route: 065
  2. COLCHICINE [Suspect]
     Active Substance: COLCHICINE
     Indication: Pyoderma gangrenosum
     Dosage: 2 MILLIGRAM, QD
     Route: 065
  3. MINOCYCLINE [Suspect]
     Active Substance: MINOCYCLINE HYDROCHLORIDE
     Indication: Pyoderma gangrenosum
     Dosage: 200 MILLIGRAM, QD
     Route: 065
  4. DOXYCYCLINE [Suspect]
     Active Substance: DOXYCYCLINE
     Indication: Pyoderma gangrenosum
     Dosage: 200 MILLIGRAM, QD
     Route: 065
  5. TACROLIMUS [Suspect]
     Active Substance: TACROLIMUS
     Indication: Pyoderma gangrenosum
     Dosage: UNK
     Route: 065
  6. METHOTREXATE [Suspect]
     Active Substance: METHOTREXATE
     Indication: Spondylitis
     Dosage: 15 MILLIGRAM PER WEEK
     Route: 065
  7. CYCLOSPORINE [Suspect]
     Active Substance: CYCLOSPORINE
     Indication: Pyoderma gangrenosum
     Dosage: UNK
     Route: 065
  8. INFLIXIMAB [Suspect]
     Active Substance: INFLIXIMAB
     Indication: Spondylitis
     Dosage: 5 MILLIGRAM/KILOGRAM, EVERY 8 WEEKS
     Route: 065
  9. ETANERCEPT [Suspect]
     Active Substance: ETANERCEPT
     Indication: Spondylitis
     Dosage: 50 MILLIGRAM PER WEEK
     Route: 065
  10. METHYLPREDNISOLONE [Suspect]
     Active Substance: METHYLPREDNISOLONE
     Indication: Pyoderma gangrenosum
     Dosage: 32 MILLIGRAM, QD
     Route: 065
  11. METHYLPREDNISOLONE [Suspect]
     Active Substance: METHYLPREDNISOLONE
     Dosage: UNK (TAPERED)
     Route: 065
  12. AZITHROMYCIN [Suspect]
     Active Substance: AZITHROMYCIN
     Indication: Pyoderma gangrenosum
     Dosage: 500 MILLIGRAM PER WEEK FOR THREE TIMES
     Route: 065

REACTIONS (5)
  - Renal impairment [Unknown]
  - Drug ineffective [Unknown]
  - Condition aggravated [Unknown]
  - Hypertension [Unknown]
  - Off label use [Unknown]
